FAERS Safety Report 14411378 (Version 2)
Quarter: 2018Q2

REPORT INFORMATION
  Report Type: Report from Study
  Country: CL (occurrence: CL)
  Receive Date: 20180119
  Receipt Date: 20180504
  Transmission Date: 20180711
  Serious: Yes (Death, Other)
  Sender: FDA-Public Use
  Company Number: CL-BRISTOL-MYERS SQUIBB COMPANY-BMS-2018-004837

PATIENT
  Sex: Female

DRUGS (1)
  1. NIVOLUMAB [Suspect]
     Active Substance: NIVOLUMAB
     Indication: BLADDER CANCER
     Dosage: 200 MG, UNK
     Route: 050
     Dates: start: 20170621, end: 20171219

REACTIONS (4)
  - Liver disorder [Fatal]
  - Bone swelling [Unknown]
  - Hepatomegaly [Unknown]
  - Hepatic enzyme increased [Unknown]
